FAERS Safety Report 9028717 (Version 2)
Quarter: 2013Q2

REPORT INFORMATION
  Report Type: Report from Study
  Country: CA (occurrence: CA)
  Receive Date: 20130124
  Receipt Date: 20130404
  Transmission Date: 20140414
  Serious: Yes (Hospitalization, Other)
  Sender: FDA-Public Use
  Company Number: CA-ABBOTT-13P-028-1039992-00

PATIENT
  Sex: Male

DRUGS (2)
  1. HUMIRA [Suspect]
     Indication: CROHN^S DISEASE
     Route: 058
     Dates: start: 20110406, end: 20121130
  2. HUMIRA [Suspect]
     Route: 058
     Dates: start: 20130117

REACTIONS (6)
  - Oedema peripheral [Unknown]
  - Injection site erythema [Unknown]
  - Subcutaneous abscess [Unknown]
  - Erythema [Unknown]
  - Staphylococcal infection [Unknown]
  - Cellulitis [Recovering/Resolving]
